FAERS Safety Report 8222539-3 (Version None)
Quarter: 2012Q1

REPORT INFORMATION
  Report Type: 
  Country: None (occurrence: None)
  Receive Date: 20120320
  Receipt Date: 20120314
  Transmission Date: 20120608
  Serious: No
  Sender: FDA-Public Use
  Company Number: US-PFIZER INC-2012068510

PATIENT
  Sex: Female

DRUGS (1)
  1. NORGESTREL AND ETHINYL ESTRADIOL [Suspect]
     Dosage: UNK
     Dates: start: 20110801, end: 20111001

REACTIONS (2)
  - PRODUCT QUALITY ISSUE [None]
  - METRORRHAGIA [None]
